FAERS Safety Report 12936049 (Version 2)
Quarter: 2019Q4

REPORT INFORMATION
  Report Type: Report from Study
  Country: US (occurrence: US)
  Receive Date: 20161114
  Receipt Date: 20191220
  Transmission Date: 20200122
  Serious: Yes (Other)
  Sender: FDA-Public Use
  Company Number: US-ROCHE-1854180

PATIENT
  Age: 76 Year
  Sex: Female

DRUGS (6)
  1. ALTEPLASE. [Suspect]
     Active Substance: ALTEPLASE
     Indication: ISCHAEMIC STROKE
     Route: 065
     Dates: start: 20161026
  2. RAMIPRIL. [Concomitant]
     Active Substance: RAMIPRIL
     Indication: PRODUCT USED FOR UNKNOWN INDICATION
     Route: 065
  3. ASPIRIN [ACETYLSALICYLIC ACID] [Concomitant]
     Active Substance: ASPIRIN
     Indication: PRODUCT USED FOR UNKNOWN INDICATION
     Route: 065
  4. HYDROCHLOROTHIAZIDE. [Concomitant]
     Active Substance: HYDROCHLOROTHIAZIDE
     Indication: PRODUCT USED FOR UNKNOWN INDICATION
     Route: 065
  5. PANTOPRAZOLE [Concomitant]
     Active Substance: PANTOPRAZOLE
     Indication: PRODUCT USED FOR UNKNOWN INDICATION
     Route: 065
  6. ATENOLOL. [Concomitant]
     Active Substance: ATENOLOL
     Indication: PRODUCT USED FOR UNKNOWN INDICATION
     Route: 065

REACTIONS (6)
  - Hemiparesis [Recovered/Resolved]
  - Swollen tongue [Recovered/Resolved]
  - Angioedema [Unknown]
  - Aphasia [Recovered/Resolved]
  - Facial paralysis [Recovered/Resolved]
  - Swelling face [Recovered/Resolved]

NARRATIVE: CASE EVENT DATE: 20161026
